FAERS Safety Report 13035464 (Version 1)
Quarter: 2016Q4

REPORT INFORMATION
  Report Type: Spontaneous
  Country: US (occurrence: US)
  Receive Date: 20161215
  Receipt Date: 20161215
  Transmission Date: 20170207
  Serious: Yes (Hospitalization)
  Sender: FDA-Public Use
  Company Number: None

PATIENT
  Age: 63 Year
  Sex: Female

DRUGS (1)
  1. COPAXONE [Suspect]
     Active Substance: GLATIRAMER ACETATE
     Indication: MULTIPLE SCLEROSIS
     Route: 058
     Dates: start: 20160301, end: 20161201

REACTIONS (6)
  - Dyspnoea [None]
  - Movement disorder [None]
  - Headache [None]
  - Feeling hot [None]
  - Blood pressure decreased [None]
  - Back pain [None]

NARRATIVE: CASE EVENT DATE: 20161201
